FAERS Safety Report 11302916 (Version 1)
Quarter: 2015Q3

REPORT INFORMATION
  Report Type: Spontaneous
  Country: US (occurrence: US)
  Receive Date: 20150723
  Receipt Date: 20150723
  Transmission Date: 20151125
  Serious: Yes (Other)
  Sender: FDA-Public Use
  Company Number: US-PFIZER INC-2015243242

PATIENT
  Age: 9 Decade
  Sex: Female

DRUGS (1)
  1. PRISTIQ EXTENDED RELEASE [Suspect]
     Active Substance: DESVENLAFAXINE SUCCINATE
     Indication: DEPRESSION
     Dosage: ^20 ML^

REACTIONS (6)
  - Blood cholesterol increased [Unknown]
  - Blood pressure increased [Unknown]
  - Eye disorder [Unknown]
  - Cerebrovascular accident [Unknown]
  - Malaise [Unknown]
  - Nervousness [Unknown]
